FAERS Safety Report 9962130 (Version 1)
Quarter: 2014Q1

REPORT INFORMATION
  Report Type: Spontaneous
  Country: US (occurrence: None)
  Receive Date: 20140304
  Receipt Date: 20140304
  Transmission Date: 20141002
  Serious: Yes (Hospitalization)
  Sender: FDA-Public Use
  Company Number: None

PATIENT
  Age: 79 Year
  Sex: Male
  Weight: 110.9 kg

DRUGS (6)
  1. CASODEX [Suspect]
     Dosage: 2800 MG TOTAL DOSE ADMINISTERED
     Route: 048
     Dates: start: 20131231, end: 20140225
  2. LEUPROLIDE ACETATE [Suspect]
     Dates: end: 20131231
  3. ASPIRIN [Concomitant]
  4. FINASTERIDE [Concomitant]
  5. LISINOPRIL [Concomitant]
  6. OMEPRAZOLE [Concomitant]

REACTIONS (1)
  - Acute myocardial infarction [None]
